FAERS Safety Report 6242704-4 (Version None)
Quarter: 2009Q2

REPORT INFORMATION
  Report Type: 
  Country: None (occurrence: None)
  Receive Date: 20090624
  Receipt Date: 20090617
  Transmission Date: 20091009
  Serious: Yes (Death)
  Sender: FDA-Public Use
  Company Number: PHEH2009US05950

PATIENT
  Age: 53 Year
  Sex: Female

DRUGS (1)
  1. EXJADE [Suspect]
     Indication: MYELOFIBROSIS
     Dosage: 125 MG, QD
     Route: 048

REACTIONS (3)
  - DISEASE PROGRESSION [None]
  - HAEMORRHAGE INTRACRANIAL [None]
  - MALIGNANT NEOPLASM PROGRESSION [None]
